FAERS Safety Report 9346113 (Version 1)
Quarter: 2013Q2

REPORT INFORMATION
  Report Type: Spontaneous
  Country: DE (occurrence: DE)
  Receive Date: 20130613
  Receipt Date: 20130613
  Transmission Date: 20140414
  Serious: Yes (Hospitalization)
  Sender: FDA-Public Use
  Company Number: DE-BIOGENIDEC-2013BI034850

PATIENT
  Age: 58 Year
  Sex: Female

DRUGS (1)
  1. AVONEX [Suspect]
     Indication: MULTIPLE SCLEROSIS
     Dates: start: 20060915

REACTIONS (6)
  - Feeling of body temperature change [Recovered/Resolved]
  - Cervicobrachial syndrome [Unknown]
  - Carpal tunnel syndrome [Unknown]
  - Foot deformity [Unknown]
  - Procedural pain [Unknown]
  - Local swelling [Recovered/Resolved]
